FAERS Safety Report 9444860 (Version 2)
Quarter: 2013Q3

REPORT INFORMATION
  Report Type: Spontaneous
  Country: DE (occurrence: DE)
  Receive Date: 20130807
  Receipt Date: 20130827
  Transmission Date: 20140515
  Serious: Yes (Hospitalization, Other)
  Sender: FDA-Public Use
  Company Number: DE-SANOFI-AVENTIS-2012SA047967

PATIENT
  Age: 20 Year
  Sex: Male

DRUGS (4)
  1. FERRLECIT [Suspect]
     Indication: IRON DEFICIENCY
     Dosage: DOSE REPORTED AS 6 INFUSIONS
     Route: 042
     Dates: start: 201007, end: 201008
  2. FERRLECIT [Suspect]
     Indication: IRON DEFICIENCY
     Dosage: DOSE REPORTED AS:10 INFUSIONS
     Route: 042
     Dates: start: 201107, end: 201111
  3. LEVOTHYROXINE SODIUM [Concomitant]
     Indication: HYPOTHYROIDISM
     Dates: end: 2012
  4. FERRO ^SANOL^ [Concomitant]
     Indication: IRON DEFICIENCY

REACTIONS (35)
  - Renal failure [Unknown]
  - Protein urine present [Unknown]
  - Urine sodium increased [Unknown]
  - Respiratory failure [Unknown]
  - Dyspnoea [Unknown]
  - Physical examination abnormal [Unknown]
  - Apparent death [Unknown]
  - Skin discolouration [Unknown]
  - Dark circles under eyes [Unknown]
  - Thrombosis [Unknown]
  - Circulatory collapse [Unknown]
  - Syncope [Unknown]
  - Blood pressure decreased [Unknown]
  - Renal pain [Unknown]
  - Memory impairment [Unknown]
  - Aphasia [Unknown]
  - Irritability [Unknown]
  - Restlessness [Unknown]
  - Cystitis noninfective [Unknown]
  - Drug ineffective [Unknown]
  - Haemoglobin decreased [Unknown]
  - Malaise [Unknown]
  - Heart rate increased [Unknown]
  - Faeces discoloured [Unknown]
  - Abdominal distension [Unknown]
  - Faecal incontinence [Unknown]
  - Cardiac disorder [Unknown]
  - Bone disorder [Unknown]
  - Diarrhoea [Unknown]
  - Thyroid function test abnormal [Unknown]
  - Skin discolouration [Unknown]
  - Pruritus [Unknown]
  - Back pain [Unknown]
  - Abdominal pain [Unknown]
  - Hypertension [Unknown]
